FAERS Safety Report 9614723 (Version 3)
Quarter: 2014Q2

REPORT INFORMATION
  Report Type: Spontaneous
  Country: JP (occurrence: JP)
  Receive Date: 20131011
  Receipt Date: 20140609
  Transmission Date: 20141212
  Serious: Yes (Other)
  Sender: FDA-Public Use
  Company Number: JP-ASTELLAS-2013JP010548

PATIENT
  Age: 59 Year
  Sex: Male

DRUGS (6)
  1. PROGRAF [Suspect]
     Indication: RHEUMATOID ARTHRITIS
     Route: 048
     Dates: start: 20110125
  2. BONALON [Concomitant]
     Indication: OSTEOPOROSIS
     Route: 048
     Dates: start: 20100324
  3. ACTEMRA [Concomitant]
     Indication: RHEUMATOID ARTHRITIS
     Route: 041
     Dates: start: 20120214
  4. IRBETAN [Concomitant]
     Indication: HYPERTENSION
     Dosage: UNK, UNKNOWN FREQ.
     Route: 048
  5. URSO                               /00465701/ [Concomitant]
     Indication: LIVER DISORDER
     Route: 048
     Dates: start: 20101228
  6. URSO                               /00465701/ [Concomitant]
     Route: 048

REACTIONS (2)
  - Liver disorder [Recovering/Resolving]
  - Intentional product misuse [Unknown]
